FAERS Safety Report 5692750-4 (Version None)
Quarter: 2008Q2

REPORT INFORMATION
  Report Type: 
  Country: None (occurrence: None)
  Receive Date: 20080401
  Receipt Date: 20080325
  Transmission Date: 20081010
  Serious: Yes (Death, Hospitalization)
  Sender: FDA-Public Use
  Company Number: 163-21880-08031705

PATIENT
  Age: 49 Year
  Sex: Female

DRUGS (13)
  1. REVLIMID [Suspect]
     Indication: MULTIPLE MYELOMA
     Dosage: 25 MG, 21D/28D, ORAL
     Route: 048
     Dates: start: 20071005, end: 20071115
  2. REVLIMID [Suspect]
  3. PRBC (BLOOD AND RELATED PRODUCTS) [Concomitant]
  4. FRESH PLASMA (BLOOD AND RELATED PRODUCTS) [Concomitant]
  5. PLATELET (BLOOD CELLS, PACKED HUMAN) [Concomitant]
  6. DEXAMETHASONE TAB [Concomitant]
  7. ALKERAN [Concomitant]
  8. ANZEMET [Concomitant]
  9. FENTANYL [Concomitant]
  10. FELODIPINE [Concomitant]
  11. PHOSLO [Concomitant]
  12. DOCUSATE (DOCUSATE) [Concomitant]
  13. NORTRIPTYLINE (NORTIPTYLINE) [Concomitant]

REACTIONS (2)
  - BACTERIAL SEPSIS [None]
  - SUBDURAL HAEMATOMA [None]
